FAERS Safety Report 5340992-X (Version None)
Quarter: 2007Q2

REPORT INFORMATION
  Report Type: 
  Country: None (occurrence: None)
  Receive Date: 20070530
  Receipt Date: 20070517
  Transmission Date: 20071010
  Serious: Yes (Hospitalization, Other)
  Sender: FDA-Public Use
  Company Number: 234011K07USA

PATIENT
  Age: 53 Year
  Sex: Female

DRUGS (1)
  1. REBIF [Suspect]
     Indication: MULTIPLE SCLEROSIS
     Dosage: 44 MCG, 3 IN 1 WEEKS, SUBCUTANEOUS
     Route: 058
     Dates: start: 20060126

REACTIONS (9)
  - BACTERIAL INFECTION [None]
  - CRYING [None]
  - DYSPNOEA [None]
  - EMOTIONAL DISORDER [None]
  - GALLBLADDER DISORDER [None]
  - SELF INJURIOUS BEHAVIOUR [None]
  - SKIN LACERATION [None]
  - SUICIDAL IDEATION [None]
  - WEIGHT DECREASED [None]
